FAERS Safety Report 4702197-2 (Version None)
Quarter: 2005Q2

REPORT INFORMATION
  Report Type: 
  Country: None (occurrence: None)
  Receive Date: 20050629
  Receipt Date: 20050110
  Transmission Date: 20051028
  Serious: Yes (Hospitalization, Other)
  Sender: FDA-Public Use
  Company Number: 200510203US

PATIENT
  Age: 46 Year
  Sex: 0

DRUGS (9)
  1. KETEK [Suspect]
     Indication: SINUSITIS
     Dosage: DOSE: 400 MG 2 TABLETS
     Route: 048
     Dates: start: 20041129, end: 20041202
  2. ROBITUSSIN WITH CODEINE [Concomitant]
     Dosage: DOSE: 2 TSP EVERY 4 HOURS
  3. DECONAL [Concomitant]
  4. BEXTRA [Concomitant]
  5. PROZAC [Concomitant]
  6. TRAZODONE [Concomitant]
  7. PRILOSEC [Concomitant]
  8. COZAAR [Concomitant]
  9. ALDACTONE [Concomitant]

REACTIONS (11)
  - ANAEMIA [None]
  - BLOOD ALKALINE PHOSPHATASE INCREASED [None]
  - BLOOD CREATININE INCREASED [None]
  - DIALYSIS [None]
  - ESCHERICHIA INFECTION [None]
  - ESCHERICHIA URINARY TRACT INFECTION [None]
  - NEPHRITIS ALLERGIC [None]
  - NEPHRITIS INTERSTITIAL [None]
  - RED BLOOD CELL SEDIMENTATION RATE INCREASED [None]
  - RENAL FAILURE [None]
  - THROMBOCYTOPENIA [None]
